FAERS Safety Report 5717717-9 (Version None)
Quarter: 2008Q2

REPORT INFORMATION
  Report Type: 
  Country: None (occurrence: None)
  Receive Date: 20080425
  Receipt Date: 20080410
  Transmission Date: 20081010
  Serious: Yes (Hospitalization)
  Sender: FDA-Public Use
  Company Number: US-AMGEN-US274004

PATIENT
  Sex: Male

DRUGS (1)
  1. EPOGEN [Suspect]
     Indication: ANAEMIA

REACTIONS (4)
  - CELLULITIS [None]
  - EAR DISCOMFORT [None]
  - OEDEMA MOUTH [None]
  - ORAL PAIN [None]
